FAERS Safety Report 25597675 (Version 1)
Quarter: 2025Q3

REPORT INFORMATION
  Report Type: Spontaneous
  Country: US (occurrence: None)
  Receive Date: 20250723
  Receipt Date: 20250723
  Transmission Date: 20251020
  Serious: No
  Sender: FDA-CTU
  Company Number: None

PATIENT
  Age: 61 Year
  Sex: Male
  Weight: 89.55 kg

DRUGS (7)
  1. NIACINAMIDE\TIRZEPATIDE [Suspect]
     Active Substance: NIACINAMIDE\TIRZEPATIDE
     Indication: Weight decreased
     Dosage: OTHER QUANTITY : 1 INJECTION(S);?OTHER FREQUENCY : ONCE PER WEEK;?
     Route: 058
     Dates: start: 20250611
  2. NIACINAMIDE\TIRZEPATIDE [Suspect]
     Active Substance: NIACINAMIDE\TIRZEPATIDE
     Indication: Glucose tolerance impaired
  3. VALSARTAN [Concomitant]
     Active Substance: VALSARTAN
  4. BIKTARVY [Concomitant]
     Active Substance: BICTEGRAVIR SODIUM\EMTRICITABINE\TENOFOVIR ALAFENAMIDE FUMARATE
  5. VALACYCLOVIR [Concomitant]
     Active Substance: VALACYCLOVIR HYDROCHLORIDE
  6. ROSUVASTATIN [Concomitant]
     Active Substance: ROSUVASTATIN
  7. IBUPROFEN [Concomitant]
     Active Substance: IBUPROFEN

REACTIONS (3)
  - Injection site erythema [None]
  - Injection site swelling [None]
  - Injection site warmth [None]

NARRATIVE: CASE EVENT DATE: 20250716
